FAERS Safety Report 8076397-0 (Version None)
Quarter: 2012Q1

REPORT INFORMATION
  Report Type: 
  Country: None (occurrence: None)
  Receive Date: 20120127
  Receipt Date: 20120127
  Transmission Date: 20120608
  Serious: No
  Sender: FDA-Public Use
  Company Number: None

PATIENT
  Age: 52 Year
  Sex: Male
  Weight: 77.11 kg

DRUGS (2)
  1. KLONOPIN [Concomitant]
     Dates: start: 20120101, end: 20120117
  2. LORAZEPAM [Suspect]
     Indication: ANXIETY
     Dates: start: 20120101, end: 20120117

REACTIONS (2)
  - MEDICATION ERROR [None]
  - PRODUCT COMMINGLING [None]
